FAERS Safety Report 21346296 (Version 2)
Quarter: 2022Q3

REPORT INFORMATION
  Report Type: Report from Study
  Country: ZA (occurrence: ZA)
  Receive Date: 20220917
  Receipt Date: 20220921
  Transmission Date: 20221026
  Serious: Yes (Other)
  Sender: FDA-Public Use
  Company Number: ZA-NOVARTISPH-NVSC2022ZA190835

PATIENT
  Age: 51 Year
  Sex: Female

DRUGS (2)
  1. SIPONIMOD [Suspect]
     Active Substance: SIPONIMOD
     Indication: Secondary progressive multiple sclerosis
     Dosage: 2 MG, QD
     Route: 048
     Dates: start: 20220822
  2. SIPONIMOD [Suspect]
     Active Substance: SIPONIMOD
     Dosage: 2 DOSAGE FORM, QD (FROM THIS MORNING, AS PER TITRATION SCHEDULE)
     Route: 048
     Dates: start: 20220823

REACTIONS (6)
  - Blood pressure decreased [Unknown]
  - Bradycardia [Recovering/Resolving]
  - Blood pressure increased [Recovering/Resolving]
  - Headache [Recovered/Resolved]
  - Fall [Recovering/Resolving]
  - Heart rate irregular [Unknown]

NARRATIVE: CASE EVENT DATE: 20220822
